FAERS Safety Report 6690690-5 (Version None)
Quarter: 2010Q2

REPORT INFORMATION
  Report Type: 
  Country: None (occurrence: None)
  Receive Date: 20100420
  Receipt Date: 20100420
  Transmission Date: 20101027
  Serious: Yes (Hospitalization)
  Sender: FDA-Public Use
  Company Number: None

PATIENT
  Age: 62 Year
  Sex: Male
  Weight: 97.1 kg

DRUGS (2)
  1. METOPROLOL [Suspect]
     Indication: HYPERTENSION
     Dosage: 50 MG BID PO
     Route: 048
     Dates: start: 20090507, end: 20100415
  2. VERAPAMIL [Suspect]
     Indication: HYPERTENSION
     Dosage: 240 MG EVERY DAY PO
     Route: 048
     Dates: start: 19970514, end: 20100415

REACTIONS (2)
  - ATRIOVENTRICULAR BLOCK [None]
  - DIZZINESS [None]
